FAERS Safety Report 18644515 (Version 2)
Quarter: 2020Q4

REPORT INFORMATION
  Report Type: Spontaneous
  Country: JP (occurrence: JP)
  Receive Date: 20201221
  Receipt Date: 20201223
  Transmission Date: 20210114
  Serious: Yes (Other)
  Sender: FDA-Public Use
  Company Number: JP-PFIZER INC-2020480134

PATIENT
  Age: 70 Year
  Sex: Male

DRUGS (10)
  1. MEROPENEM. [Suspect]
     Active Substance: MEROPENEM
     Indication: FEBRILE NEUTROPENIA
     Dosage: 1.5 G/DAY
  2. AMPHOTERICIN-B [Suspect]
     Active Substance: AMPHOTERICIN B
     Dosage: 2.5 MG/KG/DAY
  3. AMPHOTERICIN-B [Suspect]
     Active Substance: AMPHOTERICIN B
     Dosage: 10 MG/KG/DAY
  4. MICAFUNGIN. [Suspect]
     Active Substance: MICAFUNGIN SODIUM
     Indication: ANTIFUNGAL TREATMENT
  5. LEVOFLOXACIN. [Suspect]
     Active Substance: LEVOFLOXACIN
     Dosage: 500 MG/DAY
  6. CYTARABINE/DAUNORUBICIN [Concomitant]
     Active Substance: CYTARABINE\DAUNORUBICIN
     Indication: ACUTE MONOCYTIC LEUKAEMIA
     Dosage: UNK
  7. MEROPENEM. [Suspect]
     Active Substance: MEROPENEM
     Indication: EVIDENCE BASED TREATMENT
     Dosage: 4 G/DAY
  8. MICAFUNGIN. [Suspect]
     Active Substance: MICAFUNGIN SODIUM
     Indication: EVIDENCE BASED TREATMENT
  9. AMPHOTERICIN-B [Suspect]
     Active Substance: AMPHOTERICIN B
     Dosage: 5 MG/KG/DAY
  10. MICAFUNGIN. [Suspect]
     Active Substance: MICAFUNGIN SODIUM
     Indication: FEBRILE NEUTROPENIA
     Dosage: 150 MG/DAY

REACTIONS (2)
  - Drug ineffective [Unknown]
  - Off label use [Unknown]
